FAERS Safety Report 7595413-3 (Version None)
Quarter: 2011Q3

REPORT INFORMATION
  Report Type: 
  Country: None (occurrence: None)
  Receive Date: 20110707
  Receipt Date: 20110701
  Transmission Date: 20111222
  Serious: Yes (Death)
  Sender: FDA-Public Use
  Company Number: JP-ROCHE-749649

PATIENT
  Sex: Male

DRUGS (25)
  1. PREDNISOLONE [Concomitant]
     Dosage: FORM: PERORAL AGENT.
     Route: 048
     Dates: start: 20081101, end: 20081118
  2. FLAVERIC [Concomitant]
     Route: 048
     Dates: start: 20051026, end: 20101118
  3. FOLIC ACID [Concomitant]
     Dosage: DOSE FORM: PERORAL AGENT
     Route: 048
     Dates: start: 20080825, end: 20101118
  4. DIOVAN [Concomitant]
     Dosage: FORM: PERORAL AGENT.
     Route: 048
     Dates: start: 20100125, end: 20101118
  5. TOCILIZUMAB [Suspect]
     Dosage: ROUTE: INTRAVENOUS DRIP, FORM: INJECTION
     Route: 042
     Dates: start: 20090810, end: 20090810
  6. TOCILIZUMAB [Suspect]
     Dosage: ROUTE: INTRAVENOUS DRIP, FORM: INJECTION
     Route: 042
     Dates: start: 20090907, end: 20090907
  7. RIMATIL [Concomitant]
     Dosage: DOSE FORM: PERORAL AGENT
     Route: 048
     Dates: start: 20051026, end: 20101031
  8. PREDNISOLONE [Concomitant]
     Dosage: DOSE FORM: PERORAL AGENT
     Route: 048
     Dates: start: 20080825, end: 20081031
  9. LANIRAPID [Concomitant]
     Route: 048
     Dates: start: 20100323, end: 20101118
  10. MUCODYNE [Concomitant]
     Dosage: DOSE FORM: PERORAL AGENT
     Route: 048
     Dates: start: 20051026, end: 20101118
  11. CARVEDILOL [Concomitant]
     Route: 048
     Dates: start: 20100614, end: 20101118
  12. TOCILIZUMAB [Suspect]
     Dosage: ROUTE: INTRAVENOUS DRIP, FORM: INJECTION
     Route: 042
     Dates: start: 20100125, end: 20101101
  13. RHEUMATREX [Concomitant]
     Dosage: NOTE: AFTER THE SUPPER THE TREE AND MONEY MORNING
     Route: 048
     Dates: start: 20070919, end: 20101118
  14. PREDNISOLONE [Concomitant]
     Dosage: DOSE FORM: PERORAL AGENT
     Route: 048
     Dates: start: 20080630, end: 20080824
  15. TOCILIZUMAB [Suspect]
     Dosage: ROUTE: INTRAVENOUS DRIP, FORM: INJECTION
     Route: 042
     Dates: start: 20090713, end: 20090713
  16. TOCILIZUMAB [Suspect]
     Indication: RHEUMATOID ARTHRITIS
     Dosage: ROUTE: INTRAVENOUS DRIP, FORM: INJECTION
     Route: 042
     Dates: start: 20090615, end: 20090615
  17. KETOPROFEN [Concomitant]
     Dosage: DRUG NAME REPORTED AS: MOHRUS TAPE L, DOSE FORM: TAPE
     Route: 061
  18. TOCILIZUMAB [Suspect]
     Dosage: ROUTE: INTRAVENOUS DRIP, FORM: INJECTION
     Route: 042
     Dates: start: 20091102, end: 20091102
  19. TOCILIZUMAB [Suspect]
     Dosage: ROUTE: INTRAVENOUS DRIP, FORM: INJECTION
     Route: 042
     Dates: start: 20091228, end: 20091228
  20. CYTOTEC [Concomitant]
     Dosage: DOSE FORM: PERORAL AGENT
     Route: 048
     Dates: start: 20071024, end: 20101118
  21. LOXONIN [Concomitant]
     Dosage: DOSE FORM: PERORAL AGENT
     Route: 048
     Dates: start: 20071024, end: 20101118
  22. TOCILIZUMAB [Suspect]
     Dosage: ROUTE: INTRAVENOUS DRIP, FORM: INJECTION
     Route: 042
     Dates: start: 20091005, end: 20091005
  23. TOCILIZUMAB [Suspect]
     Dosage: ROUTE: INTRAVENOUS DRIP, FORM: INJECTION
     Route: 042
     Dates: start: 20091130, end: 20091130
  24. PREDNISOLONE [Concomitant]
     Dosage: DOSE FORM: PERORAL AGENT
     Route: 048
     Dates: end: 20080629
  25. LASIX [Concomitant]
     Dosage: FORM: PERORAL AGENT.
     Route: 048
     Dates: start: 20100323, end: 20101118

REACTIONS (1)
  - RESPIRATORY FAILURE [None]
